FAERS Safety Report 17390685 (Version 21)
Quarter: 2025Q3

REPORT INFORMATION
  Report Type: Report from Study
  Country: US (occurrence: US)
  Receive Date: 20200207
  Receipt Date: 20250901
  Transmission Date: 20251020
  Serious: Yes (Hospitalization, Other)
  Sender: TAKEDA
  Company Number: US-SHIRE-US202004184

PATIENT
  Age: 74 Year
  Sex: Female
  Weight: 50 kg

DRUGS (34)
  1. HUMAN IMMUNOGLOBULIN G [Suspect]
     Active Substance: HUMAN IMMUNOGLOBULIN G
     Indication: Immunodeficiency common variable
     Dosage: UNK UNK, Q6WEEKS
     Dates: start: 20170501
  2. HUMAN IMMUNOGLOBULIN G [Suspect]
     Active Substance: HUMAN IMMUNOGLOBULIN G
     Dosage: 400 MILLIGRAM/KILOGRAM, Q6WEEKS
  3. HUMAN IMMUNOGLOBULIN G [Suspect]
     Active Substance: HUMAN IMMUNOGLOBULIN G
     Dosage: 21 GRAM, Q6WEEKS
  4. DIPHENHYDRAMINE [Concomitant]
     Active Substance: DIPHENHYDRAMINE
  5. FEMRING [Concomitant]
     Active Substance: ESTRADIOL ACETATE
  6. EPINEPHRINE [Concomitant]
     Active Substance: EPINEPHRINE
  7. SODIUM CHLORIDE [Concomitant]
     Active Substance: SODIUM CHLORIDE
  8. QUERCETIN DIHYDRATE [Concomitant]
     Active Substance: QUERCETIN DIHYDRATE
  9. COLLAGENASE [Concomitant]
     Active Substance: COLLAGENASE CLOSTRIDIUM HISTOLYTICUM
  10. ACETAMINOPHEN [Concomitant]
     Active Substance: ACETAMINOPHEN
  11. IRBESARTAN AND HYDROCHLOROTHIAZIDE [Concomitant]
     Active Substance: HYDROCHLOROTHIAZIDE\IRBESARTAN
  12. IBUPROFEN [Concomitant]
     Active Substance: IBUPROFEN
  13. CELEXA [Concomitant]
     Active Substance: CITALOPRAM HYDROBROMIDE
  14. VITAMIN B12 [Concomitant]
     Active Substance: CYANOCOBALAMIN
  15. NORETHINDRONE ACETATE [Concomitant]
     Active Substance: NORETHINDRONE ACETATE
  16. LIDOCAINE [Concomitant]
     Active Substance: LIDOCAINE
  17. VALACYCLOVIR HYDROCHLORIDE [Concomitant]
     Active Substance: VALACYCLOVIR HYDROCHLORIDE
  18. ZITHROMAX [Concomitant]
     Active Substance: AZITHROMYCIN DIHYDRATE
  19. ZANTAC [Concomitant]
     Active Substance: RANITIDINE HYDROCHLORIDE
  20. COENZYME Q10 [Concomitant]
     Active Substance: DIETARY SUPPLEMENT\UBIDECARENONE
  21. CRINONE [Concomitant]
     Active Substance: PROGESTERONE
  22. MAGNESIUM [Concomitant]
     Active Substance: MAGNESIUM
  23. AMPICILLIN TRIHYDRATE [Concomitant]
     Active Substance: AMPICILLIN TRIHYDRATE
  24. ECHINACEA [Concomitant]
     Active Substance: ECHINACEA, UNSPECIFIED
  25. AZO Bladder Control With Go Less [Concomitant]
  26. PANTOPRAZOLE SODIUM [Concomitant]
     Active Substance: PANTOPRAZOLE SODIUM
  27. GAVISCON [Concomitant]
     Active Substance: ALUMINUM HYDROXIDE\MAGNESIUM CARBONATE
  28. DIPHENHYDRAMINE HYDROCHLORIDE [Concomitant]
     Active Substance: DIPHENHYDRAMINE HYDROCHLORIDE
  29. IRBESARTAN [Concomitant]
     Active Substance: IRBESARTAN
  30. VITAMIN D [Concomitant]
     Active Substance: VITAMIN D NOS
  31. VITAMIN C [Concomitant]
     Active Substance: ASCORBIC ACID
  32. VITAMIN B [Concomitant]
     Active Substance: VITAMIN B
  33. URO-MP [Concomitant]
     Active Substance: HYOSCYAMINE SULFATE\METHENAMINE\METHYLENE BLUE\PHENYL SALICYLATE\SODIUM PHOSPHATE, MONOBASIC, MONOHY
  34. CALCIUM [Concomitant]
     Active Substance: CALCIUM

REACTIONS (25)
  - Pneumonia [Unknown]
  - Gallbladder disorder [Unknown]
  - Loss of consciousness [Unknown]
  - Lip swelling [Unknown]
  - Blood pressure decreased [Unknown]
  - Multiple allergies [Unknown]
  - Nasopharyngitis [Unknown]
  - Urinary tract infection [Unknown]
  - Herpes virus infection [Unknown]
  - Face injury [Unknown]
  - Viral infection [Unknown]
  - Bladder disorder [Unknown]
  - Gastroenteritis viral [Unknown]
  - Incorrect dose administered [Unknown]
  - Inappropriate schedule of product administration [Unknown]
  - Tooth abscess [Unknown]
  - Swelling face [Unknown]
  - Sinusitis [Unknown]
  - Infusion site extravasation [Unknown]
  - Pain [Unknown]
  - Oedema [Unknown]
  - Vomiting [Unknown]
  - Chills [Unknown]
  - Fatigue [Unknown]
  - Headache [Unknown]

NARRATIVE: CASE EVENT DATE: 20220728
